FAERS Safety Report 23876435 (Version 5)
Quarter: 2024Q4

REPORT INFORMATION
  Report Type: Report from Study
  Country: US (occurrence: US)
  Receive Date: 20240521
  Receipt Date: 20241016
  Transmission Date: 20250115
  Serious: Yes (Other)
  Sender: MALLINCKRODT
  Company Number: US-MALLINCKRODT-MNK202403196

PATIENT
  Sex: Male

DRUGS (7)
  1. CORTICOTROPIN [Suspect]
     Active Substance: CORTICOTROPIN
     Indication: Nephrotic syndrome
     Dosage: UNKNOWN
  2. CORTICOTROPIN [Suspect]
     Active Substance: CORTICOTROPIN
     Indication: Nephrotic syndrome
  3. RYBELSUS [Concomitant]
     Active Substance: SEMAGLUTIDE
  4. RYBELSUS [Concomitant]
     Active Substance: SEMAGLUTIDE
  5. LYRICA [Concomitant]
     Active Substance: PREGABALIN
     Dosage: UNKNOWN
  6. LOSARTAN [Concomitant]
     Active Substance: LOSARTAN
     Dosage: UNKNOWN
  7. LASIX [Concomitant]
     Active Substance: FUROSEMIDE
     Dosage: UNKNOWN

REACTIONS (6)
  - Diabetes mellitus [Not Recovered/Not Resolved]
  - Weight decreased [Unknown]
  - Dysphonia [Unknown]
  - Paraesthesia [Unknown]
  - Inappropriate schedule of product administration [Unknown]
  - Wrong technique in product usage process [Unknown]
